FAERS Safety Report 4710104-1 (Version None)
Quarter: 2005Q2

REPORT INFORMATION
  Report Type: 
  Country: None (occurrence: None)
  Receive Date: 20050629
  Receipt Date: 20050523
  Transmission Date: 20051028
  Serious: No
  Sender: FDA-Public Use
  Company Number: 05P-163-0301243-00

PATIENT
  Age: 60 Year
  Sex: Female
  Weight: 43.0917 kg

DRUGS (21)
  1. HUMIRA [Suspect]
     Indication: RHEUMATOID ARTHRITIS
     Dosage: 40 MG, 1 IN 2 WK, SUBCUTANEOUS
     Route: 058
     Dates: start: 20050521
  2. PREDNISONE TAB [Concomitant]
  3. METHOTREXATE [Concomitant]
  4. HYDROXYCHLOROQUINE PHOSPHATE [Concomitant]
  5. LEFLUNOMIDE [Concomitant]
  6. MELOXICAM [Concomitant]
  7. DIGOXIN [Concomitant]
  8. METOPROLOL SUCCINATE [Concomitant]
  9. VALSARTAN [Concomitant]
  10. ATORVASTATIN CALCIUM [Concomitant]
  11. AMLODIPINE BESYLATE [Concomitant]
  12. CLOPIDOGREL BISULFATE [Concomitant]
  13. RISDRONATE SODIUM [Concomitant]
  14. ACETAMINOPHEN [Concomitant]
  15. GABAPENTIN [Concomitant]
  16. ASPIRIN [Concomitant]
  17. FOLIC ACID [Concomitant]
  18. CALCIUM WITH VITAMIN D [Concomitant]
  19. HORMONE REPLACEMENT THERAPY [Concomitant]
  20. PRE-NATAL VITAMINS [Concomitant]
  21. PYCNOGENOL [Concomitant]

REACTIONS (2)
  - INJECTION SITE ERYTHEMA [None]
  - INJECTION SITE PRURITUS [None]
